FAERS Safety Report 20711478 (Version 2)
Quarter: 2022Q2

REPORT INFORMATION
  Report Type: Spontaneous
  Country: CA (occurrence: CA)
  Receive Date: 20220414
  Receipt Date: 20220512
  Transmission Date: 20220721
  Serious: No
  Sender: FDA-Public Use
  Company Number: CA-PFIZER INC-202200518271

PATIENT

DRUGS (1)
  1. FRAGMIN [Suspect]
     Active Substance: DALTEPARIN SODIUM
     Dosage: FRAGMIN SSOL 16500 IU 5X0.66 ML DSSD

REACTIONS (2)
  - Wrong technique in device usage process [Unknown]
  - Syringe issue [Unknown]
